FAERS Safety Report 6410395-5 (Version None)
Quarter: 2009Q4

REPORT INFORMATION
  Report Type: 
  Country: None (occurrence: None)
  Receive Date: 20091022
  Receipt Date: 20091019
  Transmission Date: 20100525
  Serious: Yes (Death, Hospitalization, Other)
  Sender: FDA-Public Use
  Company Number: PHHY2009BR12094

PATIENT
  Sex: Female

DRUGS (4)
  1. EXELON [Suspect]
     Indication: DEMENTIA ALZHEIMER'S TYPE
     Dosage: 2 CAPSULES PER DAY
     Route: 048
  2. EXELON [Suspect]
     Dosage: 9MG/5CM2, 1 PATCH EVERY 24 HOURS
     Route: 062
  3. FLUOXETINE [Concomitant]
     Indication: DEPRESSION
     Dosage: 10 MG, QID
     Route: 048
  4. OMEPRAZOLE [Concomitant]
     Indication: ABDOMINAL DISCOMFORT
     Dosage: 40 MG, QD

REACTIONS (5)
  - DYSPHAGIA [None]
  - FALL [None]
  - FEMUR FRACTURE [None]
  - PULMONARY EMBOLISM [None]
  - SURGERY [None]
